FAERS Safety Report 7942345-4 (Version None)
Quarter: 2011Q4

REPORT INFORMATION
  Report Type: 
  Country: None (occurrence: None)
  Receive Date: 20111128
  Receipt Date: 20111117
  Transmission Date: 20120403
  Serious: Yes (Death)
  Sender: FDA-Public Use
  Company Number: SG-GLAXOSMITHKLINE-B0735956B

PATIENT
  Sex: Female
  Weight: 43.5 kg

DRUGS (1)
  1. OFATUMUMAB [Suspect]
     Indication: B-CELL LYMPHOMA
     Route: 042
     Dates: start: 20110615, end: 20110712

REACTIONS (1)
  - DIFFUSE LARGE B-CELL LYMPHOMA [None]
